FAERS Safety Report 8778897 (Version 3)
Quarter: 2012Q4

REPORT INFORMATION
  Report Type: 
  Country: US (occurrence: US)
  Receive Date: 20120912
  Receipt Date: 20121217
  Transmission Date: 20130627
  Serious: Yes (Other)
  Sender: FDA-Public Use
  Company Number: US-ELI_LILLY_AND_COMPANY-US201209001613

PATIENT
  Sex: Female
  Weight: 62 kg

DRUGS (7)
  1. CYMBALTA [Suspect]
     Indication: FIBROMYALGIA
     Dosage: 30 mg, UNK
     Route: 048
     Dates: start: 20120805, end: 20120816
  2. CYMBALTA [Suspect]
     Dosage: 30 mg, each morning
     Dates: end: 20120816
  3. PROZAC [Suspect]
  4. LORTAB [Concomitant]
  5. ATENOLOL [Concomitant]
  6. TRAZODONE [Concomitant]
  7. MULTIVITAMIN [Concomitant]

REACTIONS (7)
  - Pyrexia [Not Recovered/Not Resolved]
  - Ascites [Recovered/Resolved]
  - Oedema peripheral [Recovered/Resolved]
  - Liver tenderness [Recovered/Resolved]
  - Nausea [Recovered/Resolved]
  - Abdominal pain [Recovered/Resolved]
  - Abdominal distension [Recovered/Resolved]
